FAERS Safety Report 6211110-0 (Version None)
Quarter: 2009Q2

REPORT INFORMATION
  Report Type: 
  Country: None (occurrence: None)
  Receive Date: 20090602
  Receipt Date: 20090528
  Transmission Date: 20091009
  Serious: Yes (Hospitalization)
  Sender: FDA-Public Use
  Company Number: SE-BRISTOL-MYERS SQUIBB COMPANY-14641823

PATIENT
  Age: 62 Year
  Sex: Female

DRUGS (3)
  1. ORENCIA [Suspect]
     Indication: IMMUNOSUPPRESSANT DRUG THERAPY
     Dosage: POWDER FOR CONCENTRATE FOR SOLN FOR INF 250MG.
     Route: 042
     Dates: start: 20090109, end: 20090226
  2. METOJECT [Concomitant]
     Dosage: SOLN FOR INJ, 1 DF = 10 MG/ML.
  3. PREDNISOLONE [Concomitant]
     Dosage: TAKEN AS TABS.

REACTIONS (2)
  - LEFT VENTRICULAR FAILURE [None]
  - PNEUMONIA BACTERIAL [None]
